FAERS Safety Report 19684311 (Version 1)
Quarter: 2021Q3

REPORT INFORMATION
  Report Type: Spontaneous
  Country: US (occurrence: US)
  Receive Date: 20210810
  Receipt Date: 20210810
  Transmission Date: 20211014
  Serious: Yes (Hospitalization)
  Sender: FDA-Public Use
  Company Number: None

PATIENT
  Age: 69 Year
  Sex: Male
  Weight: 88.9 kg

DRUGS (1)
  1. REGEN?COV [Suspect]
     Active Substance: CASIRIVIMAB\IMDEVIMAB
     Indication: COVID-19
     Route: 040
     Dates: start: 20210805, end: 20210805

REACTIONS (5)
  - Coronary artery disease [None]
  - Hypertension [None]
  - Atrial fibrillation [None]
  - Chronic obstructive pulmonary disease [None]
  - Cardiac pacemaker replacement [None]

NARRATIVE: CASE EVENT DATE: 20210807
